FAERS Safety Report 16141002 (Version 1)
Quarter: 2019Q2

REPORT INFORMATION
  Report Type: Spontaneous
  Country: US (occurrence: US)
  Receive Date: 20190330
  Receipt Date: 20190330
  Transmission Date: 20190711
  Serious: Yes (Other)
  Sender: FDA-Public Use
  Company Number: None

PATIENT
  Age: 55 Year
  Sex: Female
  Weight: 66.6 kg

DRUGS (2)
  1. CENTRUM SILVER WOMEN^S [Concomitant]
     Active Substance: MINERALS\VITAMINS
  2. DULOXETINE DR 30MG [Suspect]
     Active Substance: DULOXETINE
     Indication: ANXIETY
     Dosage: ?          QUANTITY:1 CAPSULE(S);?
     Route: 048
     Dates: start: 20190311, end: 20190327

REACTIONS (7)
  - Dyspnoea [None]
  - Skin burning sensation [None]
  - Urticaria [None]
  - Swelling face [None]
  - Erythema [None]
  - Contusion [None]
  - Palpitations [None]

NARRATIVE: CASE EVENT DATE: 20190321
